FAERS Safety Report 7498878-0 (Version None)
Quarter: 2011Q2

REPORT INFORMATION
  Report Type: 
  Country: None (occurrence: None)
  Receive Date: 20110516
  Receipt Date: 20110503
  Transmission Date: 20111010
  Serious: Yes (Hospitalization, Other)
  Sender: FDA-Public Use
  Company Number: 2011MA004897

PATIENT
  Age: 14 Year
  Sex: Male

DRUGS (1)
  1. VERAPAMIL HYDROCHLORIDE [Suspect]
     Indication: OVERDOSE
     Dosage: 5400 MG, 1X, PO
     Route: 048

REACTIONS (7)
  - LACTIC ACIDOSIS [None]
  - BLOOD PRESSURE DECREASED [None]
  - CONSTIPATION [None]
  - OVERDOSE [None]
  - DEPRESSED LEVEL OF CONSCIOUSNESS [None]
  - HEART RATE DECREASED [None]
  - BLOOD CREATININE INCREASED [None]
